FAERS Safety Report 6448596-2 (Version None)
Quarter: 2009Q4

REPORT INFORMATION
  Report Type: 
  Country: None (occurrence: None)
  Receive Date: 20091120
  Receipt Date: 20091111
  Transmission Date: 20100525
  Serious: Yes (Other)
  Sender: FDA-Public Use
  Company Number: US-JNJFOC-20091103929

PATIENT
  Sex: Male

DRUGS (3)
  1. REMICADE [Suspect]
     Route: 042
     Dates: start: 20090701, end: 20091028
  2. REMICADE [Suspect]
     Route: 042
     Dates: start: 20090701, end: 20091028
  3. REMICADE [Suspect]
     Indication: PSORIATIC ARTHROPATHY
     Route: 042
     Dates: start: 20090701, end: 20091028

REACTIONS (1)
  - SQUAMOUS CELL CARCINOMA OF SKIN [None]
